FAERS Safety Report 4956615-5 (Version None)
Quarter: 2006Q1

REPORT INFORMATION
  Report Type: 
  Country: None (occurrence: None)
  Receive Date: 20060329
  Receipt Date: 20041214
  Transmission Date: 20060701
  Serious: Yes (Hospitalization, Other)
  Sender: FDA-Public Use
  Company Number: US-MERCK-0412USA01804

PATIENT
  Age: 62 Year
  Sex: Female
  Weight: 61 kg

DRUGS (2)
  1. VIOXX [Suspect]
     Indication: ARTHRALGIA
     Route: 048
     Dates: start: 20000330, end: 20040930
  2. VIOXX [Suspect]
     Indication: OSTEOARTHRITIS
     Route: 048
     Dates: start: 20000330, end: 20040930

REACTIONS (32)
  - ANXIETY [None]
  - ARRHYTHMIA [None]
  - BLADDER DISORDER [None]
  - BRADYCARDIA [None]
  - CARDIAC DISORDER [None]
  - CAROTID ARTERY STENOSIS [None]
  - CATARACT [None]
  - CEREBROVASCULAR ACCIDENT [None]
  - CEREBROVASCULAR DISORDER [None]
  - CHEST PAIN [None]
  - CHOLECYSTITIS [None]
  - CHRONIC OBSTRUCTIVE PULMONARY DISEASE [None]
  - FIBROMYALGIA [None]
  - FOOT OPERATION [None]
  - GAIT DISTURBANCE [None]
  - GASTRITIS [None]
  - GASTROENTERITIS [None]
  - HERPES VIRUS INFECTION [None]
  - HIATUS HERNIA [None]
  - HYPERTENSION [None]
  - HYPOTENSION [None]
  - IRRITABLE BOWEL SYNDROME [None]
  - LIMB DEFORMITY [None]
  - MITRAL VALVE DISEASE [None]
  - MITRAL VALVE INCOMPETENCE [None]
  - MYOCARDIAL INFARCTION [None]
  - OESOPHAGITIS [None]
  - OSTEOARTHRITIS [None]
  - OSTEOPOROSIS [None]
  - RHINITIS [None]
  - SYNCOPE [None]
  - TRANSIENT ISCHAEMIC ATTACK [None]
